FAERS Safety Report 23988900 (Version 1)
Quarter: 2024Q2

REPORT INFORMATION
  Report Type: Spontaneous
  Country: US (occurrence: US)
  Receive Date: 20240619
  Receipt Date: 20240619
  Transmission Date: 20240716
  Serious: Yes (Other)
  Sender: FDA-Public Use
  Company Number: US-TEVA-VS-3208829

PATIENT
  Age: 73 Year
  Sex: Male

DRUGS (5)
  1. CLONAZEPAM [Suspect]
     Active Substance: CLONAZEPAM
     Indication: Product used for unknown indication
     Dosage: TIME INTERVAL: 0.33333333 DAYS: 0.25 IN THE MORNING, 0.25 IN THE AFTERNOON AND 0.5 MG AT NIGHT
     Route: 065
  2. TRAMADOL HYDROCHLORIDE [Suspect]
     Active Substance: TRAMADOL HYDROCHLORIDE
     Indication: Groin pain
     Dosage: TIME INTERVAL: 0.33333333 DAYS: 50 MG IS 25 MG THREE TIMES A DAY, WHICH HE ACCOMPLISHES BY SPLITT...
     Route: 065
  3. TRAMADOL HYDROCHLORIDE [Suspect]
     Active Substance: TRAMADOL HYDROCHLORIDE
     Indication: Groin pain
     Dosage: TAPERED DOWN TO 50 MG
     Route: 065
  4. TRAMADOL HYDROCHLORIDE [Suspect]
     Active Substance: TRAMADOL HYDROCHLORIDE
     Indication: Groin pain
     Dosage: WENT DOWN AS FAR AS 25 MG
     Route: 065
  5. GABAPENTIN [Concomitant]
     Active Substance: GABAPENTIN
     Dosage: TIME INTERVAL: 0.33333333 DAYS
     Route: 065

REACTIONS (5)
  - Dementia [Unknown]
  - Dizziness [Unknown]
  - Insomnia [Unknown]
  - Wrong technique in product usage process [Unknown]
  - Back pain [Unknown]
